FAERS Safety Report 11731088 (Version 1)
Quarter: 2015Q4

REPORT INFORMATION
  Report Type: Spontaneous
  Country: US (occurrence: US)
  Receive Date: 20151110
  Receipt Date: 20151110
  Transmission Date: 20160304
  Serious: No
  Sender: FDA-Public Use
  Company Number: US-ELI_LILLY_AND_COMPANY-US201201009168

PATIENT
  Age: 57 Year
  Sex: Female

DRUGS (3)
  1. FORTEO [Suspect]
     Active Substance: TERIPARATIDE
     Dosage: 20 UG, QD
     Route: 065
     Dates: end: 20120225
  2. FORTEO [Suspect]
     Active Substance: TERIPARATIDE
     Indication: OSTEOPOROSIS
     Dosage: 20 UG, QD
     Route: 065
     Dates: start: 20120127
  3. IMITREX [Concomitant]
     Active Substance: SUMATRIPTAN\SUMATRIPTAN SUCCINATE
     Indication: MIGRAINE

REACTIONS (13)
  - Injection site bruising [Unknown]
  - Dizziness [Recovering/Resolving]
  - Intentional product misuse [Unknown]
  - Neck pain [Recovering/Resolving]
  - Nausea [Recovering/Resolving]
  - Back pain [Unknown]
  - Asthenia [Recovering/Resolving]
  - Vomiting [Recovering/Resolving]
  - Injection site haemorrhage [Unknown]
  - Hypophagia [Recovering/Resolving]
  - Headache [Unknown]
  - Joint stiffness [Recovering/Resolving]
  - Gait disturbance [Recovering/Resolving]

NARRATIVE: CASE EVENT DATE: 20120127
